FAERS Safety Report 11038475 (Version 2)
Quarter: 2015Q2

REPORT INFORMATION
  Report Type: Spontaneous
  Country: IT (occurrence: IT)
  Receive Date: 20150416
  Receipt Date: 20150416
  Transmission Date: 20150821
  Serious: Yes (Hospitalization)
  Sender: FDA-Public Use
  Company Number: IT-SA-2015SA047274

PATIENT
  Age: 82 Year
  Sex: Male

DRUGS (6)
  1. CARVEDILOL. [Suspect]
     Active Substance: CARVEDILOL
     Route: 048
     Dates: start: 20070101, end: 20140405
  2. ENAPREN [Suspect]
     Active Substance: ENALAPRIL MALEATE
     Dosage: STRENGTH: 20 MG
     Route: 048
     Dates: start: 20070101, end: 20140405
  3. CARDURA [Suspect]
     Active Substance: DOXAZOSIN MESYLATE
     Dosage: STRENGTH: 2MG
     Route: 048
     Dates: start: 20070101, end: 20140405
  4. LASIX [Suspect]
     Active Substance: FUROSEMIDE
     Route: 048
     Dates: start: 20140101, end: 20140405
  5. TRINIPLAS [Suspect]
     Active Substance: NITROGLYCERIN
     Dosage: STRENGTH: 5 MG
     Route: 065
     Dates: start: 20000101, end: 20140405
  6. KCL-RETARD [Concomitant]
     Active Substance: POTASSIUM CHLORIDE

REACTIONS (2)
  - Hypotension [None]
  - Presyncope [Recovered/Resolved]

NARRATIVE: CASE EVENT DATE: 20140405
